FAERS Safety Report 16787530 (Version 3)
Quarter: 2019Q3

REPORT INFORMATION
  Report Type: Spontaneous
  Country: US (occurrence: US)
  Receive Date: 20190909
  Receipt Date: 20190923
  Transmission Date: 20191005
  Serious: Yes (Other)
  Sender: FDA-Public Use
  Company Number: US-ENDO PHARMACEUTICALS INC-2019-105899

PATIENT
  Age: 66 Year
  Sex: Female
  Weight: 58.96 kg

DRUGS (3)
  1. XIAFLEX [Suspect]
     Active Substance: COLLAGENASE CLOSTRIDIUM HISTOLYTICUM
     Indication: DUPUYTREN^S CONTRACTURE
     Dosage: UNK UNKNOWN, UNKNOWN
     Route: 026
     Dates: start: 20190115, end: 20190115
  2. HYOSCYAMINE. [Concomitant]
     Active Substance: HYOSCYAMINE
     Indication: IRRITABLE BOWEL SYNDROME
     Dosage: 2 DF, DAILY
  3. HYOSCYAMINE ER                        /00064702/ [Concomitant]
     Indication: IRRITABLE BOWEL SYNDROME
     Dosage: 2 DF, DAILY

REACTIONS (8)
  - Skin discolouration [Not Recovered/Not Resolved]
  - Pain [Unknown]
  - Dupuytren^s contracture [Not Recovered/Not Resolved]
  - Pain in extremity [Unknown]
  - Finger repair operation [Unknown]
  - Drug ineffective [Unknown]
  - Depressed mood [Unknown]
  - Condition aggravated [Not Recovered/Not Resolved]

NARRATIVE: CASE EVENT DATE: 2019
